FAERS Safety Report 5573519-8 (Version None)
Quarter: 2007Q4

REPORT INFORMATION
  Report Type: 
  Country: None (occurrence: None)
  Receive Date: 20071220
  Receipt Date: 20071220
  Transmission Date: 20080405
  Serious: Yes (Other)
  Sender: FDA-Public Use
  Company Number: None

PATIENT
  Sex: Female

DRUGS (3)
  1. REVLIMID [Suspect]
     Indication: MULTIPLE MYELOMA
     Dosage: 10MG  DAILY  PO
     Route: 048
     Dates: start: 20070216, end: 20071217
  2. DEXAMETHASONE TAB [Concomitant]
  3. FAMOTADINE [Concomitant]

REACTIONS (5)
  - COUGH [None]
  - DYSPNOEA [None]
  - INFLUENZA LIKE ILLNESS [None]
  - NEUTROPENIA [None]
  - RESPIRATORY TRACT CONGESTION [None]
